FAERS Safety Report 9803058 (Version 1)
Quarter: 2014Q1

REPORT INFORMATION
  Report Type: Spontaneous
  Country: US (occurrence: None)
  Receive Date: 20140107
  Receipt Date: 20140107
  Transmission Date: 20141002
  Serious: Yes (Life-Threatening)
  Sender: FDA-Public Use
  Company Number: None

PATIENT
  Age: 31 Year
  Sex: Male
  Weight: 88.45 kg

DRUGS (1)
  1. ESCITALOPRAM [Suspect]
     Indication: ANXIETY
     Dosage: 1/2 PILL  ONCE DAILY  TAKEN BY MOUTH
     Route: 048

REACTIONS (5)
  - Dyspnoea [None]
  - Anxiety [None]
  - Suicidal ideation [None]
  - Drug ineffective [None]
  - Product substitution issue [None]
